FAERS Safety Report 9274732 (Version 4)
Quarter: 2013Q4

REPORT INFORMATION
  Report Type: Spontaneous
  Country: US (occurrence: None)
  Receive Date: 20130429
  Receipt Date: 20131108
  Transmission Date: 20140711
  Serious: Yes (Hospitalization)
  Sender: FDA-Public Use
  Company Number: ACO_35666_2013

PATIENT
  Age: 51 Year
  Sex: Female
  Weight: 59 kg

DRUGS (9)
  1. AMPYRA [Suspect]
     Indication: GAIT DISTURBANCE
     Route: 048
  2. OXYCODONE/APAP (OXYCODONE, PARACETAMOL) CAPSULE [Concomitant]
  3. COPAXONE [Concomitant]
  4. IBUPROFEN (IBUPROFEN) TABLET [Concomitant]
  5. BACLOFEN (BACLOFEN) TABLET [Concomitant]
  6. OXYBUTYNIN (OXYBUTYNIN) TABLET [Concomitant]
  7. MEDROXYPROGESTERONE ACETATE (MEDROXYPROGESTERONE ACETATE) TABLET [Concomitant]
  8. ESTRADIOL (ESTRADIOL) TABLET [Concomitant]
  9. VITAMIN D (ERGOCALCIFEROL) [Concomitant]

REACTIONS (5)
  - Hip fracture [None]
  - Fall [None]
  - Peroneal nerve palsy [None]
  - Walking aid user [None]
  - Balance disorder [None]
